FAERS Safety Report 11180466 (Version 1)
Quarter: 2015Q2

REPORT INFORMATION
  Report Type: Spontaneous
  Country: US (occurrence: US)
  Receive Date: 20150611
  Receipt Date: 20150611
  Transmission Date: 20150821
  Serious: Yes (Other)
  Sender: FDA-Public Use
  Company Number: US-PFIZER INC-2015192316

PATIENT
  Age: 84 Year
  Sex: Female
  Weight: 67 kg

DRUGS (1)
  1. PREMARIN [Suspect]
     Active Substance: ESTROGENS, CONJUGATED
     Dosage: UNK
     Route: 048
     Dates: start: 1992, end: 1992

REACTIONS (3)
  - Blood pressure increased [Unknown]
  - Genital disorder female [Unknown]
  - Ovarian cancer [Recovered/Resolved]

NARRATIVE: CASE EVENT DATE: 199209
